FAERS Safety Report 6838160-5 (Version None)
Quarter: 2010Q3

REPORT INFORMATION
  Report Type: 
  Country: None (occurrence: None)
  Receive Date: 20100713
  Receipt Date: 20070601
  Transmission Date: 20110219
  Serious: No
  Sender: FDA-Public Use
  Company Number: US-PFIZER INC-2007046325

PATIENT
  Sex: Female
  Weight: 90 kg

DRUGS (5)
  1. CHANTIX [Suspect]
     Indication: SMOKING CESSATION THERAPY
     Dates: start: 20070401
  2. ANTIHYPERTENSIVES [Concomitant]
  3. CELEXA [Concomitant]
  4. ALLEGRA [Concomitant]
  5. TYLENOL [Concomitant]

REACTIONS (3)
  - ARTHRALGIA [None]
  - MUSCULOSKELETAL DISCOMFORT [None]
  - SLEEP DISORDER [None]
